FAERS Safety Report 5515191-9 (Version None)
Quarter: 2007Q4

REPORT INFORMATION
  Report Type: 
  Country: None (occurrence: None)
  Receive Date: 20071113
  Receipt Date: 20070202
  Transmission Date: 20080405
  Serious: Yes (Other)
  Sender: FDA-Public Use
  Company Number: A0638174A

PATIENT
  Age: 80 Year
  Sex: Female

DRUGS (2)
  1. COREG [Suspect]
     Route: 048
     Dates: end: 20070131
  2. DIOVAN [Concomitant]

REACTIONS (3)
  - HYPOTENSION [None]
  - HYPOVENTILATION [None]
  - SYNCOPE [None]
